FAERS Safety Report 5463577-3 (Version None)
Quarter: 2007Q3

REPORT INFORMATION
  Report Type: 
  Country: None (occurrence: None)
  Receive Date: 20070920
  Receipt Date: 20070914
  Transmission Date: 20080115
  Serious: Yes (Hospitalization)
  Sender: FDA-Public Use
  Company Number: US-GENENTECH-237449

PATIENT
  Sex: Female

DRUGS (8)
  1. OMALIZUMAB [Suspect]
     Indication: ASTHMA
     Dosage: UNK UNK, UNKNOWN
     Route: 065
  2. ADVAIR DISKUS 100/50 [Concomitant]
     Indication: ASTHMA
  3. ALBUTEROL [Concomitant]
     Indication: ASTHMA
  4. CLARINEX [Concomitant]
     Indication: HYPERSENSITIVITY
  5. PRENATAL VITAMINS [Concomitant]
     Indication: DRUG USE FOR UNKNOWN INDICATION
  6. ALLEGRA D 24 HOUR [Concomitant]
     Indication: HYPERSENSITIVITY
  7. SINGULAIR [Concomitant]
     Indication: ASTHMA
  8. ORTHO TRI-CYCLEN LO [Concomitant]
     Indication: CONTRACEPTION

REACTIONS (4)
  - ASTHMA [None]
  - DRUG EXPOSURE DURING PREGNANCY [None]
  - GASTROENTERITIS VIRAL [None]
  - URINARY TRACT INFECTION [None]
